FAERS Safety Report 15950825 (Version 2)
Quarter: 2019Q1

REPORT INFORMATION
  Report Type: Report from Study
  Country: US (occurrence: US)
  Receive Date: 20190212
  Receipt Date: 20190215
  Transmission Date: 20190417
  Serious: Yes (Hospitalization)
  Sender: FDA-Public Use
  Company Number: US-BAUSCH-BL-2019-004132

PATIENT
  Sex: Female
  Weight: 68.1 kg

DRUGS (2)
  1. UCERIS [Suspect]
     Active Substance: BUDESONIDE
     Indication: COLITIS ULCERATIVE
     Route: 048
     Dates: start: 2013, end: 201810
  2. UCERIS [Suspect]
     Active Substance: BUDESONIDE
     Route: 048
     Dates: start: 201810

REACTIONS (6)
  - Weight decreased [Recovered/Resolved]
  - Eating disorder [Recovered/Resolved]
  - Ill-defined disorder [Recovered/Resolved]
  - Dehydration [Recovered/Resolved]
  - Chronic obstructive pulmonary disease [Recovered/Resolved]
  - Therapy cessation [Recovered/Resolved]

NARRATIVE: CASE EVENT DATE: 2018
